FAERS Safety Report 11773772 (Version 1)
Quarter: 2015Q4

REPORT INFORMATION
  Report Type: Report from Study
  Country: DE (occurrence: DE)
  Receive Date: 20151124
  Receipt Date: 20151124
  Transmission Date: 20160304
  Serious: Yes (Other)
  Sender: FDA-Public Use
  Company Number: DE-ASTRAZENECA-2015SF12162

PATIENT
  Age: 23640 Day
  Sex: Female
  Weight: 70 kg

DRUGS (1)
  1. EKLIRA GENUAIR [Suspect]
     Active Substance: ACLIDINIUM BROMIDE
     Indication: CHRONIC OBSTRUCTIVE PULMONARY DISEASE
     Route: 055
     Dates: start: 20150129, end: 20150227

REACTIONS (2)
  - Cough [Unknown]
  - Micturition disorder [Unknown]

NARRATIVE: CASE EVENT DATE: 20150210
